FAERS Safety Report 7056382-8 (Version None)
Quarter: 2010Q4

REPORT INFORMATION
  Report Type: 
  Country: None (occurrence: None)
  Receive Date: 20101021
  Receipt Date: 20101008
  Transmission Date: 20110411
  Serious: Yes (Hospitalization)
  Sender: FDA-Public Use
  Company Number: CA-MYLANLABS-2010S1018664

PATIENT
  Sex: Female

DRUGS (4)
  1. MYLAN-VENLAFAXINE XR [Suspect]
     Indication: POSTPARTUM DEPRESSION
     Route: 048
  2. MYLAN-VENLAFAXINE XR [Suspect]
     Route: 048
     Dates: start: 20100101
  3. MYLAN-VENLAFAXINE XR [Suspect]
     Dosage: EVERY FEW DAYS
     Route: 048
     Dates: start: 20100101, end: 20100101
  4. CONTRACEPTIVE [Concomitant]

REACTIONS (7)
  - AFFECT LABILITY [None]
  - AGITATION [None]
  - DIZZINESS [None]
  - FEELING ABNORMAL [None]
  - MIGRAINE [None]
  - NAUSEA [None]
  - PARAESTHESIA [None]
